FAERS Safety Report 6058933-9 (Version None)
Quarter: 2009Q1

REPORT INFORMATION
  Report Type: 
  Country: None (occurrence: None)
  Receive Date: 20090130
  Receipt Date: 20090122
  Transmission Date: 20090719
  Serious: Yes (Hospitalization, Other)
  Sender: FDA-Public Use
  Company Number: FR-BRISTOL-MYERS SQUIBB COMPANY-14423107

PATIENT
  Age: 23 Year
  Sex: Male
  Weight: 75 kg

DRUGS (2)
  1. ABILIFY [Suspect]
     Indication: SCHIZOPHRENIA, PARANOID TYPE
     Dosage: 1 DOSAGE FORM= 7 TABS;ABILIFY 10 MG/DAY;INCREASED TO 20MG/D;
     Route: 048
     Dates: start: 20081112, end: 20081121
  2. LOXAPAC [Suspect]
     Dosage: DECREASED TO 100MG/D
     Dates: start: 20081003, end: 20081117

REACTIONS (5)
  - DRUG ABUSE [None]
  - OVERDOSE [None]
  - PSYCHOMOTOR HYPERACTIVITY [None]
  - SCHIZOPHRENIA, PARANOID TYPE [None]
  - THINKING ABNORMAL [None]
